FAERS Safety Report 5448442-X (Version None)
Quarter: 2007Q3

REPORT INFORMATION
  Report Type: 
  Country: None (occurrence: None)
  Receive Date: 20070906
  Receipt Date: 20070823
  Transmission Date: 20080115
  Serious: Yes (Life-Threatening)
  Sender: FDA-Public Use
  Company Number: MPS1-10673

PATIENT
  Age: 5 Year
  Sex: Male

DRUGS (3)
  1. ALDURAZYME [Suspect]
     Indication: MUCOPOLYSACCHARIDOSIS IH
     Dosage: 8.7 MG QWK IV
     Route: 042
     Dates: start: 20030604
  2. HYDROCORTISONE [Concomitant]
  3. BENADRYL [Concomitant]

REACTIONS (13)
  - ABDOMINAL PAIN [None]
  - ANGIOEDEMA [None]
  - BLOOD PRESSURE DIASTOLIC DECREASED [None]
  - COUGH [None]
  - INFUSION RELATED REACTION [None]
  - LOCAL SWELLING [None]
  - OEDEMA GENITAL [None]
  - OXYGEN SATURATION DECREASED [None]
  - PRURITUS [None]
  - RESPIRATORY RATE INCREASED [None]
  - URTICARIA [None]
  - VOMITING [None]
  - WHEEZING [None]
